FAERS Safety Report 22059209 (Version 2)
Quarter: 2023Q2

REPORT INFORMATION
  Report Type: Report from Study
  Country: DE (occurrence: DE)
  Receive Date: 20230303
  Receipt Date: 20230519
  Transmission Date: 20230722
  Serious: Yes (Hospitalization)
  Sender: FDA-Public Use
  Company Number: DE-SA-SAC20230214001423

PATIENT
  Age: 64 Year
  Sex: Male
  Weight: 82 kg

DRUGS (8)
  1. ISATUXIMAB [Suspect]
     Active Substance: ISATUXIMAB
     Indication: Plasma cell myeloma
     Dosage: 10 MG/KG
     Route: 042
     Dates: start: 20200525, end: 20200525
  2. ISATUXIMAB [Suspect]
     Active Substance: ISATUXIMAB
     Dosage: 10 MG/KG
     Route: 042
     Dates: start: 20230112, end: 20230112
  3. LENALIDOMIDE [Suspect]
     Active Substance: LENALIDOMIDE
     Indication: Plasma cell myeloma
     Dosage: 15 MG
     Route: 048
     Dates: start: 20200525, end: 20200525
  4. LENALIDOMIDE [Suspect]
     Active Substance: LENALIDOMIDE
     Dosage: 15 MG
     Route: 048
     Dates: start: 20230202, end: 20230202
  5. BORTEZOMIB [Concomitant]
     Active Substance: BORTEZOMIB
     Indication: Plasma cell myeloma
     Dosage: 1.3 MG/M2 (DOSE: 2.7 MG)
     Route: 058
     Dates: start: 20200525, end: 20200525
  6. BORTEZOMIB [Concomitant]
     Active Substance: BORTEZOMIB
     Dosage: 1.3 MG/M2 (DOSE: 2.7 MG)
     Route: 058
     Dates: start: 20200928, end: 20200928
  7. DEXAMETHASONE [Concomitant]
     Active Substance: DEXAMETHASONE
     Indication: Plasma cell myeloma
     Dosage: 8 MG
     Route: 048
     Dates: start: 20200525, end: 20200525
  8. DEXAMETHASONE [Concomitant]
     Active Substance: DEXAMETHASONE
     Dosage: 8 G
     Route: 048
     Dates: start: 20230112, end: 20230112

REACTIONS (2)
  - Atypical pneumonia [Recovered/Resolved]
  - Cardiac failure congestive [Recovered/Resolved]

NARRATIVE: CASE EVENT DATE: 20230203
